FAERS Safety Report 4757779-9 (Version None)
Quarter: 2005Q3

REPORT INFORMATION
  Report Type: 
  Country: None (occurrence: None)
  Receive Date: 20050831
  Receipt Date: 20050819
  Transmission Date: 20060218
  Serious: Yes (Hospitalization, Disabling, Other)
  Sender: FDA-Public Use
  Company Number: DE-BRISTOL-MYERS SQUIBB COMPANY-13090964

PATIENT
  Age: 66 Year
  Sex: Female

DRUGS (2)
  1. ERBITUX [Suspect]
     Indication: METASTATIC NEOPLASM
     Dates: start: 20050412
  2. IRINOTECAN [Concomitant]

REACTIONS (3)
  - CATARACT [None]
  - KERATITIS [None]
  - ULCERATIVE KERATITIS [None]
